FAERS Safety Report 6667869-1 (Version None)
Quarter: 2010Q2

REPORT INFORMATION
  Report Type: 
  Country: None (occurrence: None)
  Receive Date: 20100405
  Receipt Date: 20100330
  Transmission Date: 20101027
  Serious: Yes (Other)
  Sender: FDA-Public Use
  Company Number: US-CEPHALON-2010001875

PATIENT
  Sex: Female

DRUGS (1)
  1. GABITRIL [Suspect]
     Route: 048

REACTIONS (1)
  - CONVULSION [None]
